FAERS Safety Report 5265462-9 (Version None)
Quarter: 2007Q1

REPORT INFORMATION
  Report Type: 
  Country: None (occurrence: None)
  Receive Date: 20070314
  Receipt Date: 20070221
  Transmission Date: 20070707
  Serious: Yes (Hospitalization, Other)
  Sender: FDA-Public Use
  Company Number: US-PFIZER INC-2006055560

PATIENT
  Sex: Female
  Weight: 62.1 kg

DRUGS (2)
  1. BEXTRA [Suspect]
     Indication: BONE PAIN
     Route: 048
  2. BEXTRA [Suspect]
     Indication: MYALGIA

REACTIONS (5)
  - ARTERIOSCLEROSIS [None]
  - CEREBROVASCULAR ACCIDENT [None]
  - HYPERTENSION [None]
  - MYOCARDIAL INFARCTION [None]
  - THROMBOSIS [None]
